FAERS Safety Report 9349580 (Version 1)
Quarter: 2013Q2

REPORT INFORMATION
  Report Type: Report from Study
  Country: DE (occurrence: DE)
  Receive Date: 20130614
  Receipt Date: 20130614
  Transmission Date: 20140414
  Serious: Yes (Life-Threatening)
  Sender: FDA-Public Use
  Company Number: DE-GLAXOSMITHKLINE-Z0012570F

PATIENT
  Age: 75 Year
  Sex: Female
  Weight: 67 kg

DRUGS (4)
  1. TRAMETINIB [Suspect]
     Indication: MALIGNANT MELANOMA
     Dosage: 2MG PER DAY
     Route: 048
     Dates: start: 20110628
  2. FENISTIL [Suspect]
     Indication: IODINE ALLERGY
     Dosage: 2U SINGLE DOSE
     Route: 042
     Dates: start: 20130604, end: 20130604
  3. TAGAMET [Suspect]
     Indication: IODINE ALLERGY
     Dosage: 2U SINGLE DOSE
     Route: 042
     Dates: start: 20130604, end: 20130604
  4. URBASON [Suspect]
     Indication: IODINE ALLERGY
     Dosage: 500MG SINGLE DOSE
     Route: 042
     Dates: start: 20130604, end: 20130604

REACTIONS (1)
  - Hypertensive crisis [Recovered/Resolved]
